FAERS Safety Report 7314910-9 (Version None)
Quarter: 2011Q1

REPORT INFORMATION
  Report Type: 
  Country: None (occurrence: None)
  Receive Date: 20110225
  Receipt Date: 20100222
  Transmission Date: 20110831
  Serious: No
  Sender: FDA-Public Use
  Company Number: US-MYLANLABS-2010S1001425

PATIENT
  Age: 49 Year
  Sex: Female
  Weight: 68.04 kg

DRUGS (3)
  1. AMNESTEEM [Suspect]
     Indication: ACNE
     Route: 048
     Dates: start: 20090819, end: 20091222
  2. AMPICILLIN [Concomitant]
     Dates: start: 20091008, end: 20100131
  3. BACTRIM DS [Concomitant]
     Dates: start: 20090819, end: 20091007

REACTIONS (7)
  - ARTHRALGIA [None]
  - EPISTAXIS [None]
  - HEADACHE [None]
  - MYALGIA [None]
  - DRY EYE [None]
  - VISION BLURRED [None]
  - TINNITUS [None]
